FAERS Safety Report 17081600 (Version 1)
Quarter: 2019Q4

REPORT INFORMATION
  Report Type: Spontaneous
  Country: US (occurrence: US)
  Receive Date: 20191126
  Receipt Date: 20191126
  Transmission Date: 20200122
  Serious: Yes (Life-Threatening, Other)
  Sender: FDA-Public Use
  Company Number: None

PATIENT
  Age: 55 Year
  Sex: Female
  Weight: 134 kg

DRUGS (2)
  1. NUCALA [Concomitant]
     Active Substance: MEPOLIZUMAB
     Dates: start: 20191024, end: 20191126
  2. NUCALA [Suspect]
     Active Substance: MEPOLIZUMAB
     Indication: ASTHMA
     Dosage: ?          OTHER FREQUENCY:EVERY 28 DAYS;?
     Route: 058
     Dates: start: 20191024, end: 20191126

REACTIONS (3)
  - Dyspnoea [None]
  - Oedema peripheral [None]
  - Weight increased [None]

NARRATIVE: CASE EVENT DATE: 20191026
